FAERS Safety Report 4931374-0 (Version None)
Quarter: 2006Q1

REPORT INFORMATION
  Report Type: 
  Country: None (occurrence: None)
  Receive Date: 20060303
  Receipt Date: 20060224
  Transmission Date: 20060701
  Serious: Yes (Hospitalization, Other)
  Sender: FDA-Public Use
  Company Number: PHNU2006DE01140

PATIENT
  Age: 48 Year
  Sex: Male

DRUGS (7)
  1. RISPERDAL [Suspect]
     Dosage: 21 MG/D
     Route: 048
  2. DIPIPERON [Suspect]
     Dosage: 4 MG/D
     Route: 048
  3. AMARYL [Suspect]
     Dosage: 21 MG/D
     Route: 048
  4. DURAFENAT [Suspect]
     Dosage: 7 CAPSULS/D
     Route: 048
  5. ENALAPRIL MALEATE [Suspect]
     Dosage: 35 MG/D
     Route: 048
  6. EUNERPAN [Suspect]
     Dosage: 35 MG, ONCE/SINGLE
     Route: 065
  7. TEGRETOL [Suspect]
     Dosage: 2800 MG/D
     Route: 048

REACTIONS (13)
  - ATRIOVENTRICULAR BLOCK FIRST DEGREE [None]
  - BASE EXCESS ABNORMAL [None]
  - BLOOD POTASSIUM INCREASED [None]
  - CARDIAC ARREST [None]
  - DIARRHOEA [None]
  - DYSPNOEA [None]
  - METABOLIC ACIDOSIS [None]
  - OVERDOSE [None]
  - PLEURAL EFFUSION [None]
  - RESUSCITATION [None]
  - SUICIDAL IDEATION [None]
  - SUICIDE ATTEMPT [None]
  - VOMITING [None]
